FAERS Safety Report 7594453 (Version 4)
Quarter: 2013Q4

REPORT INFORMATION
  Report Type: Spontaneous
  Country: US (occurrence: US)
  Receive Date: 20100920
  Receipt Date: 20131206
  Transmission Date: 20140711
  Serious: Yes (Hospitalization)
  Sender: FDA-Public Use
  Company Number: US-BAYER-201033768NA

PATIENT
  Age: 29 Year
  Sex: Female
  Weight: 100 kg

DRUGS (3)
  1. YAZ [Suspect]
     Indication: ACNE
     Dosage: UNK
     Route: 048
     Dates: start: 2004
  2. YAZ [Suspect]
     Indication: PREMENSTRUAL SYNDROME
     Dosage: UNK
     Route: 048
     Dates: start: 2005, end: 20080615
  3. NEXIUM [Concomitant]
     Dosage: 40 MG, UNK

REACTIONS (6)
  - Gallbladder disorder [Unknown]
  - Cholecystitis chronic [Unknown]
  - Gastrointestinal disorder [Unknown]
  - Hormone level abnormal [None]
  - Infertility [None]
  - Pain [Unknown]
